FAERS Safety Report 6114029-9 (Version None)
Quarter: 2009Q1

REPORT INFORMATION
  Report Type: 
  Country: None (occurrence: None)
  Receive Date: 20090312
  Receipt Date: 20081222
  Transmission Date: 20090719
  Serious: No
  Sender: FDA-Public Use
  Company Number: US-ABBOTT-08P-163-0494434-00

PATIENT
  Sex: Female

DRUGS (2)
  1. LEUPROLIDE ACETATE [Suspect]
     Indication: DRUG EXPOSURE DURING PREGNANCY
     Route: 063
     Dates: start: 20081220, end: 20081220
  2. VITAMINS NOS [Concomitant]
     Indication: VITAMIN SUPPLEMENTATION
     Route: 048

REACTIONS (1)
  - DRUG EXPOSURE VIA BREAST MILK [None]
